FAERS Safety Report 7996422-2 (Version None)
Quarter: 2011Q4

REPORT INFORMATION
  Report Type: 
  Country: None (occurrence: None)
  Receive Date: 20111220
  Receipt Date: 20111205
  Transmission Date: 20120403
  Serious: Yes (Other)
  Sender: FDA-Public Use
  Company Number: IN-WATSON-2011-21842

PATIENT

DRUGS (1)
  1. PREDNISOLONE [Suspect]
     Indication: HAEMANGIOMA
     Dosage: 3-4 MG/KG/DAY
     Route: 048

REACTIONS (1)
  - WEIGHT GAIN POOR [None]
